FAERS Safety Report 9330235 (Version 1)
Quarter: 2013Q2

REPORT INFORMATION
  Report Type: Spontaneous
  Country: TW (occurrence: TW)
  Receive Date: 20130604
  Receipt Date: 20130604
  Transmission Date: 20140414
  Serious: Yes (Hospitalization)
  Sender: FDA-Public Use
  Company Number: TW-ABBOTT-13X-153-1097510-00

PATIENT
  Age: 21 Year
  Sex: Male

DRUGS (7)
  1. VALPROATE SODIUM [Suspect]
     Indication: SCHIZOPHRENIA
  2. CLONAZEPAM [Suspect]
     Indication: SCHIZOPHRENIA
     Dosage: 2 MILLIGRAM(S) ;DAILY
  3. ZOTEPINE [Suspect]
     Indication: SCHIZOPHRENIA
  4. ZOTEPINE [Suspect]
  5. ZOTEPINE [Suspect]
  6. ZOTEPINE [Suspect]
  7. OLANZAPINE [Concomitant]
     Indication: PRODUCT USED FOR UNKNOWN INDICATION

REACTIONS (6)
  - Myopathy [Recovered/Resolved]
  - Blood creatine phosphokinase increased [Unknown]
  - Blood lactate dehydrogenase abnormal [Unknown]
  - Pain [Unknown]
  - Asthenia [Unknown]
  - Tenderness [Unknown]
